FAERS Safety Report 25844028 (Version 1)
Quarter: 2025Q3

REPORT INFORMATION
  Report Type: Spontaneous
  Country: UA (occurrence: UA)
  Receive Date: 20250925
  Receipt Date: 20250925
  Transmission Date: 20251020
  Serious: Yes (Other)
  Sender: SANOFI AVENTIS
  Company Number: UA-ASTELLAS-2025-AER-050307

PATIENT
  Age: 63 Year
  Sex: Male

DRUGS (1)
  1. TAMSULOSIN HYDROCHLORIDE [Suspect]
     Active Substance: TAMSULOSIN HYDROCHLORIDE
     Indication: Benign prostatic hyperplasia
     Dosage: 0.4 MG, QD (AFTER MEAL)
     Route: 048
     Dates: start: 20250908, end: 20250909

REACTIONS (4)
  - Blood pressure increased [Recovered/Resolved]
  - Tremor [Recovered/Resolved]
  - Fear [Recovered/Resolved]
  - Asthenia [Recovered/Resolved]

NARRATIVE: CASE EVENT DATE: 20250908
